FAERS Safety Report 14626047 (Version 5)
Quarter: 2018Q2

REPORT INFORMATION
  Report Type: Spontaneous
  Country: JP (occurrence: JP)
  Receive Date: 20180312
  Receipt Date: 20180607
  Transmission Date: 20180711
  Serious: Yes (Hospitalization, Congenital Anomaly, Other)
  Sender: FDA-Public Use
  Company Number: JP-VIIV HEALTHCARE LIMITED-JP2018JPN038239

PATIENT
  Age: 4 Month
  Sex: Female
  Weight: 1.25 kg

DRUGS (5)
  1. ZIAGEN [Suspect]
     Active Substance: ABACAVIR SULFATE
     Indication: CONGENITAL HIV INFECTION
     Dosage: 16 MG/KG, QD
     Route: 048
     Dates: start: 201711
  2. AZT [Suspect]
     Active Substance: ZIDOVUDINE
     Indication: CONGENITAL HIV INFECTION
     Dosage: UNK, SINGLE
     Route: 064
     Dates: start: 201708
  3. ZIDOVUDINE. [Suspect]
     Active Substance: ZIDOVUDINE
     Indication: CONGENITAL HIV INFECTION
     Dosage: UNK
     Route: 048
     Dates: end: 201711
  4. VIRAMUNE [Concomitant]
     Active Substance: NEVIRAPINE
     Indication: CONGENITAL HIV INFECTION
     Dosage: 6 MG/KG, EVERY12 HOURS
     Dates: start: 201711
  5. EPIVIR [Suspect]
     Active Substance: LAMIVUDINE
     Indication: CONGENITAL HIV INFECTION
     Dosage: 8 MG/KG, QD
     Route: 048
     Dates: start: 201711

REACTIONS (8)
  - Low birth weight baby [Unknown]
  - Neutrophil count decreased [Unknown]
  - Congenital HIV infection [Not Recovered/Not Resolved]
  - Anaemia [Unknown]
  - Premature baby [Unknown]
  - Foetal exposure during pregnancy [Unknown]
  - Drug administered to patient of inappropriate age [Unknown]
  - Congenital toxoplasmosis [Not Recovered/Not Resolved]

NARRATIVE: CASE EVENT DATE: 201708
